FAERS Safety Report 24361914 (Version 1)
Quarter: 2024Q3

REPORT INFORMATION
  Report Type: Spontaneous
  Country: CN (occurrence: CN)
  Receive Date: 20240925
  Receipt Date: 20240925
  Transmission Date: 20241016
  Serious: Yes (Hospitalization)
  Sender: PAREXEL
  Company Number: CN-SHANGHAI JUNSHI BIOSCIENCES CO., LTD.-CN2024011412

PATIENT

DRUGS (3)
  1. TORIPALIMAB [Suspect]
     Active Substance: TORIPALIMAB
     Indication: Prostate cancer
     Dosage: 240 MG (D1), EVERY 21 DAYS
     Route: 041
     Dates: start: 20240907, end: 20240907
  2. PACLITAXEL [Suspect]
     Active Substance: PACLITAXEL
     Indication: Prostate cancer
     Dosage: 300 MG (D1), EVERY 21 DAYS
     Route: 041
     Dates: start: 20240907, end: 20240907
  3. SODIUM CHLORIDE [Concomitant]
     Active Substance: SODIUM CHLORIDE
     Indication: Medication dilution
     Dosage: 100 ML (D1), EVERY 21 DAYS
     Route: 041
     Dates: start: 20240907, end: 20240907

REACTIONS (3)
  - Granulocyte count decreased [Recovered/Resolved]
  - Myelosuppression [Recovering/Resolving]
  - Anaemia [Recovering/Resolving]

NARRATIVE: CASE EVENT DATE: 20240914
